FAERS Safety Report 5074765-2 (Version None)
Quarter: 2006Q3

REPORT INFORMATION
  Report Type: 
  Country: None (occurrence: None)
  Receive Date: 20060807
  Receipt Date: 20060608
  Transmission Date: 20061208
  Serious: No
  Sender: FDA-Public Use
  Company Number: DE200607003923

PATIENT
  Age: 65 Year
  Sex: Female

DRUGS (1)
  1. YENTREVE(DULOXETINE HYDROCHLORIDE) CAPSULE [Suspect]
     Indication: BLADDER DISORDER
     Dosage: ORAL
     Route: 048
     Dates: start: 20060101

REACTIONS (3)
  - ALANINE AMINOTRANSFERASE INCREASED [None]
  - ASPARTATE AMINOTRANSFERASE INCREASED [None]
  - GAMMA-GLUTAMYLTRANSFERASE INCREASED [None]
